FAERS Safety Report 14283545 (Version 5)
Quarter: 2021Q4

REPORT INFORMATION
  Report Type: Spontaneous
  Country: US (occurrence: US)
  Receive Date: 20171213
  Receipt Date: 20211001
  Transmission Date: 20220303
  Serious: No
  Sender: FDA-Public Use
  Company Number: US-AMGEN-USASP2017183529

PATIENT
  Age: 64 Year
  Sex: Male
  Weight: 88 kg

DRUGS (3)
  1. ENBREL [Suspect]
     Active Substance: ETANERCEPT
     Indication: Rheumatoid arthritis
     Dosage: 50 MG, QWK
     Route: 065
     Dates: start: 201409, end: 201711
  2. HUMIRA [Suspect]
     Active Substance: ADALIMUMAB
     Indication: Rheumatoid arthritis
     Dosage: 40 MG, QWK
     Route: 065
     Dates: start: 201111, end: 201407
  3. ARAVA [Suspect]
     Active Substance: LEFLUNOMIDE
     Indication: Rheumatoid arthritis
     Dosage: UNK
     Route: 065
     Dates: start: 201211, end: 201512

REACTIONS (3)
  - Tuberculin test positive [Unknown]
  - Drug ineffective [Unknown]
  - Chest X-ray abnormal [Unknown]

NARRATIVE: CASE EVENT DATE: 20140914
